FAERS Safety Report 4658432-2 (Version None)
Quarter: 2005Q2

REPORT INFORMATION
  Report Type: 
  Country: None (occurrence: None)
  Receive Date: 20050510
  Receipt Date: 20050510
  Transmission Date: 20051028
  Serious: No
  Sender: FDA-Public Use
  Company Number: None

PATIENT
  Age: 50 Year
  Sex: Male
  Weight: 83.4619 kg

DRUGS (9)
  1. ULTRAVIST 300 [Suspect]
     Dosage: 150 ML
  2. BARIUM [Suspect]
  3. LIPITOR [Concomitant]
  4. CLARITIN [Concomitant]
  5. GLYBURIDE [Concomitant]
  6. OMEPRAZOLE [Concomitant]
  7. METFORMIN [Concomitant]
  8. LOPID [Concomitant]
  9. ZITHROMAX [Concomitant]

REACTIONS (7)
  - BLOOD PRESSURE INCREASED [None]
  - BODY TEMPERATURE INCREASED [None]
  - CHILLS [None]
  - CONTRAST MEDIA REACTION [None]
  - HEART RATE INCREASED [None]
  - MALAISE [None]
  - TREMOR [None]
